FAERS Safety Report 4475197-8 (Version None)
Quarter: 2004Q3

REPORT INFORMATION
  Report Type: 
  Country: None (occurrence: None)
  Receive Date: 20040923
  Receipt Date: 20040706
  Transmission Date: 20050211
  Serious: No
  Sender: FDA-Public Use
  Company Number: USA040771962

PATIENT
  Age: 50 Year
  Sex: Female

DRUGS (4)
  1. FORTEO [Suspect]
     Indication: BONE GRAFT
     Dosage: 20 UG DAY
     Dates: start: 20040501
  2. ESTROGEN NOS [Concomitant]
  3. MIACALCIN [Concomitant]
  4. CALCIUM [Concomitant]

REACTIONS (3)
  - FEELING ABNORMAL [None]
  - IRRITABILITY [None]
  - PYREXIA [None]
